FAERS Safety Report 20691894 (Version 5)
Quarter: 2022Q2

REPORT INFORMATION
  Report Type: Spontaneous
  Country: JP (occurrence: JP)
  Receive Date: 20220408
  Receipt Date: 20220514
  Transmission Date: 20220720
  Serious: Yes (Hospitalization, Other)
  Sender: FDA-Public Use
  Company Number: JP-MSD-2204JPN000553JAA

PATIENT
  Age: 81 Year
  Sex: Female

DRUGS (1)
  1. KEYTRUDA [Suspect]
     Active Substance: PEMBROLIZUMAB
     Indication: Lung squamous cell carcinoma stage IV
     Dosage: UNK
     Route: 041
     Dates: start: 20210828

REACTIONS (1)
  - Coombs negative haemolytic anaemia [Recovered/Resolved]

NARRATIVE: CASE EVENT DATE: 20210921
